FAERS Safety Report 18541978 (Version 1)
Quarter: 2020Q4

REPORT INFORMATION
  Report Type: Other
  Country: IN (occurrence: IN)
  Receive Date: 20201124
  Receipt Date: 20201124
  Transmission Date: 20210114
  Serious: Yes (Life-Threatening, Other)
  Sender: FDA-Public Use
  Company Number: IN-DEXPHARM-20201056

PATIENT
  Age: 24 Year
  Sex: Male

DRUGS (4)
  1. DICLOFENAC NON DEXCEL PRODUCT [Suspect]
     Active Substance: DICLOFENAC
     Dosage: DAILY DOSE: 150 MG MILLGRAM(S) EVERY DAYS
  2. METRONIDAZOLE. [Concomitant]
     Active Substance: METRONIDAZOLE
  3. AZITHROMYCIN ANHYDROUS. [Concomitant]
     Active Substance: AZITHROMYCIN ANHYDROUS
  4. PIPERACILLIN AND TAZOBACTAM [Concomitant]
     Active Substance: PIPERACILLIN SODIUM\TAZOBACTAM SODIUM

REACTIONS (1)
  - Nephropathy toxic [Unknown]
